FAERS Safety Report 8186721-6 (Version None)
Quarter: 2012Q1

REPORT INFORMATION
  Report Type: 
  Country: None (occurrence: None)
  Receive Date: 20120306
  Receipt Date: 20120223
  Transmission Date: 20120608
  Serious: Yes (Other)
  Sender: FDA-Public Use
  Company Number: JP-EISAI INC-E7389-02112-CLI-JP

PATIENT

DRUGS (1)
  1. EPIRUBICIN HYDROCHLORIDE [Suspect]
     Indication: NON-SMALL CELL LUNG CANCER
     Route: 041
     Dates: start: 20120209

REACTIONS (1)
  - GAMMA-GLUTAMYLTRANSFERASE INCREASED [None]
